FAERS Safety Report 10652580 (Version 1)
Quarter: 2014Q4

REPORT INFORMATION
  Report Type: Spontaneous
  Country: US (occurrence: None)
  Receive Date: 20141205
  Receipt Date: 20141205
  Transmission Date: 20150529
  Serious: Yes (Hospitalization)
  Sender: FDA-Public Use
  Company Number: 163-POMAL-14090819

PATIENT
  Age: 86 Year
  Sex: Male

DRUGS (12)
  1. AVAPRO [Concomitant]
     Active Substance: IRBESARTAN
  2. ECOTRIN (ACETYLSALIC ACID) [Concomitant]
  3. LISINOPRIL. [Concomitant]
     Active Substance: LISINOPRIL
  4. AVAPRO [Concomitant]
     Active Substance: IRBESARTAN
  5. AVAPRO [Concomitant]
     Active Substance: IRBESARTAN
  6. ECOTRIN [Concomitant]
     Active Substance: ASPIRIN
  7. HYDROCODONE-ACETAMINOPHEN (VICODIN) [Concomitant]
  8. AMITRIPTYLINE HCL (AMITRIPTYLINE HYDROCHLORIDE) [Concomitant]
  9. INTEGRA F [Concomitant]
     Active Substance: ASCORBIC ACID\FERROUS ASPARTO GLYCINATE\FERROUS FUMARATE\FOLIC ACID\NIACIN
  10. OXYBUTYNIN CHLORIDE (OXYBUTYNIN HYDROCHLORIDE) [Concomitant]
     Active Substance: OXYBUTYNIN CHLORIDE
  11. POMALYST [Suspect]
     Active Substance: POMALIDOMIDE
     Indication: PLASMA CELL MYELOMA
     Dates: start: 20130404
  12. LORTAB (VICODIN) [Concomitant]

REACTIONS (1)
  - Renal impairment [None]
